FAERS Safety Report 6876633-X (Version None)
Quarter: 2010Q3

REPORT INFORMATION
  Report Type: 
  Country: None (occurrence: None)
  Receive Date: 20100727
  Receipt Date: 20100713
  Transmission Date: 20110219
  Serious: Yes (Death)
  Sender: FDA-Public Use
  Company Number: GB-MYLANLABS-2010S1012361

PATIENT
  Age: 50 Year
  Sex: Female

DRUGS (5)
  1. CITALOPRAM HYDROBROMIDE [Suspect]
     Indication: PSYCHOTIC DISORDER
  2. MIRTAZAPINE [Suspect]
     Indication: PSYCHOTIC DISORDER
  3. PROCYCLIDINE HYDROCHLORIDE 2MG TAB [Suspect]
     Indication: PSYCHOTIC DISORDER
  4. RISPERIDONE [Suspect]
     Indication: PSYCHOTIC DISORDER
  5. CLONAZEPAM [Suspect]
     Indication: PSYCHOTIC DISORDER

REACTIONS (3)
  - BRAIN OEDEMA [None]
  - INAPPROPRIATE ANTIDIURETIC HORMONE SECRETION [None]
  - RESPIRATORY ARREST [None]
